FAERS Safety Report 9883805 (Version 1)
Quarter: 2014Q1

REPORT INFORMATION
  Report Type: Report from Study
  Country: US (occurrence: US)
  Receive Date: 20140210
  Receipt Date: 20140210
  Transmission Date: 20141002
  Serious: Yes (Death)
  Sender: FDA-Public Use
  Company Number: US-ROCHE-1323829

PATIENT
  Age: 63 Year
  Sex: Male
  Weight: 75.36 kg

DRUGS (10)
  1. AVASTIN [Suspect]
     Indication: LUNG NEOPLASM MALIGNANT
     Route: 042
     Dates: start: 20110830
  2. AVASTIN [Suspect]
     Indication: METASTASES TO LIVER
     Route: 042
     Dates: start: 20110920
  3. ALIMTA [Concomitant]
     Route: 042
  4. CARBOPLATIN [Concomitant]
     Route: 042
  5. VITAMIN B12 [Concomitant]
     Dosage: 1000
     Route: 065
  6. ALOXI [Concomitant]
     Route: 040
  7. DECADRON [Concomitant]
     Route: 042
  8. EMEND [Concomitant]
     Route: 042
  9. NEULASTA [Concomitant]
     Dosage: 6
     Route: 065
  10. COMPAZINE [Concomitant]

REACTIONS (8)
  - Death [Fatal]
  - Vomiting [Unknown]
  - Constipation [Unknown]
  - Hypophagia [Unknown]
  - Fatigue [Unknown]
  - Nausea [Unknown]
  - Asthenia [Unknown]
  - Haemoptysis [Unknown]
